FAERS Safety Report 5201495-6 (Version None)
Quarter: 2007Q1

REPORT INFORMATION
  Report Type: 
  Country: None (occurrence: None)
  Receive Date: 20070108
  Receipt Date: 20061227
  Transmission Date: 20070707
  Serious: Yes (Other)
  Sender: FDA-Public Use
  Company Number: US-PFIZER INC-2006109356

PATIENT
  Sex: Male
  Weight: 106.6 kg

DRUGS (5)
  1. XALATAN [Suspect]
     Indication: GLAUCOMA
     Dosage: DAILY DOSE:2DROP
  2. LIPITOR [Concomitant]
  3. UROXATRAL [Concomitant]
  4. ALL OTHER THERAPEUTIC PRODUCTS [Concomitant]
  5. TRICOR [Concomitant]

REACTIONS (10)
  - DRY EYE [None]
  - EYE IRRITATION [None]
  - EYE PAIN [None]
  - HAIR COLOUR CHANGES [None]
  - HEADACHE [None]
  - INTRAOCULAR PRESSURE INCREASED [None]
  - LACRIMAL DISORDER [None]
  - MYOPIA [None]
  - NERVOUSNESS [None]
  - SKIN DISCOLOURATION [None]
